FAERS Safety Report 21083680 (Version 1)
Quarter: 2022Q3

REPORT INFORMATION
  Report Type: Spontaneous
  Country: CA (occurrence: CA)
  Receive Date: 20220714
  Receipt Date: 20220714
  Transmission Date: 20221026
  Serious: Yes (Hospitalization, Disabling, Other)
  Sender: FDA-Public Use
  Company Number: CA-BAYER-2022A093747

PATIENT
  Age: 23 Year
  Sex: Female

DRUGS (9)
  1. YAZ [Suspect]
     Active Substance: DROSPIRENONE\ETHINYL ESTRADIOL
     Route: 048
  2. ASPIRIN [Concomitant]
     Active Substance: ASPIRIN
  3. NIFEDIPINE [Concomitant]
     Active Substance: NIFEDIPINE
  4. TELMISARTAN [Concomitant]
     Active Substance: TELMISARTAN
  5. BUPROPION [Concomitant]
     Active Substance: BUPROPION
  6. PROPRANOLOL [Concomitant]
     Active Substance: PROPRANOLOL HYDROCHLORIDE
  7. QUETIAPINE [Concomitant]
     Active Substance: QUETIAPINE
  8. ZOPICLONE [Concomitant]
     Active Substance: ZOPICLONE
  9. VITAMIN B1 [Concomitant]
     Active Substance: THIAMINE HYDROCHLORIDE

REACTIONS (4)
  - Brain stem stroke [None]
  - Lateral medullary syndrome [None]
  - Hemiparesis [None]
  - Malaise [None]
